FAERS Safety Report 5867397-7 (Version None)
Quarter: 2008Q3

REPORT INFORMATION
  Report Type: 
  Country: None (occurrence: None)
  Receive Date: 20080902
  Receipt Date: 20080828
  Transmission Date: 20090109
  Serious: Yes (Death)
  Sender: FDA-Public Use
  Company Number: PHHY2008BR19513

PATIENT
  Sex: Male

DRUGS (1)
  1. TOFRANIL [Suspect]
     Dosage: 3 DF/DAY
     Route: 048

REACTIONS (1)
  - DEATH [None]
